FAERS Safety Report 23580008 (Version 1)
Quarter: 2024Q1

REPORT INFORMATION
  Report Type: Spontaneous
  Country: US (occurrence: None)
  Receive Date: 20240228
  Receipt Date: 20240228
  Transmission Date: 20240409
  Serious: Yes (Hospitalization, Disabling, Other)
  Sender: FDA-Public Use
  Company Number: None

PATIENT
  Age: 31 Year
  Sex: Male
  Weight: 67.5 kg

DRUGS (1)
  1. FINASTERIDE [Suspect]
     Active Substance: FINASTERIDE
     Indication: Androgenetic alopecia
     Dates: start: 20230928, end: 20231001

REACTIONS (18)
  - Hypoaesthesia [None]
  - Asthenia [None]
  - Feeling abnormal [None]
  - Painful erection [None]
  - Incoherent [None]
  - Agitation [None]
  - Restlessness [None]
  - Sleep disorder [None]
  - Penile burning sensation [None]
  - Therapy cessation [None]
  - Muscular weakness [None]
  - Weight decreased [None]
  - Brain fog [None]
  - Disorientation [None]
  - Hypoaesthesia [None]
  - Visual impairment [None]
  - Cognitive disorder [None]
  - Sexual dysfunction [None]

NARRATIVE: CASE EVENT DATE: 20230928
